FAERS Safety Report 9742579 (Version 2)
Quarter: 2015Q3

REPORT INFORMATION
  Report Type: Spontaneous
  Country: US (occurrence: US)
  Receive Date: 20131210
  Receipt Date: 20150804
  Transmission Date: 20151125
  Serious: No
  Sender: FDA-Public Use
  Company Number: US-GILEAD-2009-0024586

PATIENT
  Age: 63 Year
  Sex: Female

DRUGS (8)
  1. SPIRONOLACTONE. [Concomitant]
     Active Substance: SPIRONOLACTONE
  2. LETAIRIS [Suspect]
     Active Substance: AMBRISENTAN
     Indication: PULMONARY ARTERIAL HYPERTENSION
     Route: 048
     Dates: start: 20090714
  3. VITAMIN D [Concomitant]
     Active Substance: CHOLECALCIFEROL
  4. VITAMIN A [Concomitant]
     Active Substance: VITAMIN A
  5. URSO [Concomitant]
     Active Substance: URSODIOL
  6. LASIX [Concomitant]
     Active Substance: FUROSEMIDE
  7. LACTULOSE. [Concomitant]
     Active Substance: LACTULOSE
  8. POTASSIUM [Concomitant]
     Active Substance: POTASSIUM

REACTIONS (3)
  - Headache [Unknown]
  - Eye irritation [Unknown]
  - Fatigue [Unknown]

NARRATIVE: CASE EVENT DATE: 20090929
